FAERS Safety Report 11896595 (Version 3)
Quarter: 2016Q1

REPORT INFORMATION
  Report Type: Spontaneous
  Country: US (occurrence: US)
  Receive Date: 20160107
  Receipt Date: 20160218
  Transmission Date: 20160526
  Serious: Yes (Death)
  Sender: FDA-Public Use
  Company Number: US-VERTEX PHARMACEUTICALS-2016-000064

PATIENT
  Age: 38 Year
  Sex: Male

DRUGS (12)
  1. ADVAIR HFA [Concomitant]
     Active Substance: FLUTICASONE PROPIONATE\SALMETEROL XINAFOATE
     Dosage: 1 DF, BID
     Route: 055
     Dates: start: 20150817
  2. CYPROHEPTADINE. [Concomitant]
     Active Substance: CYPROHEPTADINE
     Dosage: 1 DF, TID
     Route: 048
     Dates: start: 20151124
  3. ORKAMBI [Suspect]
     Active Substance: IVACAFTOR\LUMACAFTOR
     Indication: CYSTIC FIBROSIS
     Dosage: 2 DF, BID
     Route: 048
     Dates: start: 20150908, end: 20151216
  4. CEFTAZIDIME. [Concomitant]
     Active Substance: CEFTAZIDIME
     Dosage: UNK
     Route: 055
     Dates: start: 20150330
  5. PROAIR HFA [Concomitant]
     Active Substance: ALBUTEROL SULFATE
     Dosage: TAKE TWO PUFFS EVERY 4 HOURS AS NEEDED
     Route: 055
     Dates: start: 20150508
  6. PULMOZYME [Concomitant]
     Active Substance: DORNASE ALFA
     Dosage: INHALE CONTENTS OF 1AMP(2.5MG) VIA NEBULIZER
     Route: 055
     Dates: start: 20150902
  7. SODIUM CHLORIDE. [Concomitant]
     Active Substance: SODIUM CHLORIDE
     Dosage: TAKE 4MLS BY NEBULIZATION,BID
     Route: 055
     Dates: start: 20150712
  8. LABETALOL [Concomitant]
     Active Substance: LABETALOL\LABETALOL HYDROCHLORIDE
     Dosage: 1 DF, QD
     Route: 048
     Dates: start: 20150113
  9. FLUTICASONE [Concomitant]
     Active Substance: FLUTICASONE\FLUTICASONE PROPIONATE
     Dosage: 2 DF, QD
     Route: 045
     Dates: start: 20140505
  10. TESTOSTERONE. [Concomitant]
     Active Substance: TESTOSTERONE
     Dosage: PLACE 2 SQUIRTS ONTO THE SKIN DAILY.
     Dates: start: 20151112
  11. ZENPEP [Concomitant]
     Active Substance: PANCRELIPASE AMYLASE\PANCRELIPASE LIPASE\PANCRELIPASE PROTEASE
     Dosage: 4 CAPSULES WITH MEALS AND 2 CAPSULES WITH SNACKS
     Dates: start: 20150917
  12. REMERON [Concomitant]
     Active Substance: MIRTAZAPINE
     Dosage: 1 DF, QD
     Route: 048
     Dates: start: 20140616

REACTIONS (1)
  - Death [Fatal]

NARRATIVE: CASE EVENT DATE: 20151216
